FAERS Safety Report 5427418-2 (Version None)
Quarter: 2007Q3

REPORT INFORMATION
  Report Type: 
  Country: None (occurrence: None)
  Receive Date: 20070824
  Receipt Date: 20070824
  Transmission Date: 20080115
  Serious: No
  Sender: FDA-Public Use
  Company Number: None

PATIENT
  Age: 80 Year
  Sex: Male
  Weight: 78.0187 kg

DRUGS (1)
  1. LISINOPRIL [Suspect]

REACTIONS (2)
  - BLOOD PRESSURE SYSTOLIC INCREASED [None]
  - SYNCOPE [None]
